FAERS Safety Report 4295602-X (Version None)
Quarter: 2004Q1

REPORT INFORMATION
  Report Type: 
  Country: None (occurrence: None)
  Receive Date: 20040216
  Receipt Date: 20030726
  Transmission Date: 20041129
  Serious: No
  Sender: FDA-Public Use
  Company Number: US-GLAXOSMITHKLINE-A0418466A

PATIENT
  Age: 59 Year
  Sex: Female

DRUGS (1)
  1. PAXIL [Suspect]
     Dates: start: 20010101

REACTIONS (2)
  - EYE PAIN [None]
  - VISION BLURRED [None]
